FAERS Safety Report 19668740 (Version 1)
Quarter: 2021Q3

REPORT INFORMATION
  Report Type: Spontaneous
  Country: US (occurrence: US)
  Receive Date: 20210806
  Receipt Date: 20210806
  Transmission Date: 20211014
  Serious: Yes (Other)
  Sender: FDA-Public Use
  Company Number: NVSC2021US176535

PATIENT
  Age: 52 Year
  Sex: Male

DRUGS (2)
  1. RANITIDINE. [Suspect]
     Active Substance: RANITIDINE
     Indication: GASTRINOMA
     Dosage: 150 MG, QD
     Route: 065
     Dates: end: 200901
  2. RANITIDINE. [Suspect]
     Active Substance: RANITIDINE
     Indication: GASTRINOMA
     Dosage: 150 MG, QD
     Route: 065
     Dates: end: 200901

REACTIONS (4)
  - Urethral cancer [Unknown]
  - Incorrect dose administered [Unknown]
  - Oesophageal carcinoma [Unknown]
  - Bladder cancer stage IV [Recovering/Resolving]

NARRATIVE: CASE EVENT DATE: 20070401
